FAERS Safety Report 7090978-2 (Version None)
Quarter: 2010Q4

REPORT INFORMATION
  Report Type: 
  Country: None (occurrence: None)
  Receive Date: 20101105
  Receipt Date: 20101105
  Transmission Date: 20110411
  Serious: No
  Sender: FDA-Public Use
  Company Number: None

PATIENT
  Age: 48 Year
  Sex: Male
  Weight: 97.5234 kg

DRUGS (1)
  1. OMEPRAZOLE [Suspect]

REACTIONS (1)
  - ARTHRALGIA [None]
